FAERS Safety Report 6865442-3 (Version None)
Quarter: 2010Q3

REPORT INFORMATION
  Report Type: 
  Country: None (occurrence: None)
  Receive Date: 20100721
  Receipt Date: 20100712
  Transmission Date: 20110219
  Serious: Yes (Other)
  Sender: FDA-Public Use
  Company Number: IT-AMGEN-QUU415505

PATIENT
  Sex: Female

DRUGS (6)
  1. ENBREL [Suspect]
     Indication: RHEUMATOID ARTHRITIS
     Dosage: 50 MG WEEKLY
     Route: 058
     Dates: start: 20030701
  2. IDEOS [Concomitant]
  3. METHOTREXATE [Concomitant]
  4. FOLINA [Concomitant]
  5. ANSIMAR [Concomitant]
  6. MEDROL [Concomitant]

REACTIONS (1)
  - ASTHMA [None]
